FAERS Safety Report 7830549-0 (Version None)
Quarter: 2011Q4

REPORT INFORMATION
  Report Type: 
  Country: None (occurrence: None)
  Receive Date: 20111021
  Receipt Date: 20111014
  Transmission Date: 20120403
  Serious: Yes (Other)
  Sender: FDA-Public Use
  Company Number: US-AMGEN-USASP2011053344

PATIENT
  Sex: Male
  Weight: 59.864 kg

DRUGS (1)
  1. PROLIA [Suspect]
     Indication: OSTEOPOROSIS
     Dosage: UNK, Q6MO
     Dates: start: 20101221

REACTIONS (9)
  - IMMUNE SYSTEM DISORDER [None]
  - EAR INFECTION [None]
  - MALAISE [None]
  - SKIN INFECTION [None]
  - CYSTITIS [None]
  - WEIGHT DECREASED [None]
  - EYE INFECTION [None]
  - SINUSITIS [None]
  - RASH [None]
